FAERS Safety Report 7830894-9 (Version None)
Quarter: 2011Q4

REPORT INFORMATION
  Report Type: 
  Country: None (occurrence: None)
  Receive Date: 20111021
  Receipt Date: 20111018
  Transmission Date: 20120403
  Serious: No
  Sender: FDA-Public Use
  Company Number: US-PFIZER INC-2011250893

PATIENT
  Sex: Female
  Weight: 71.202 kg

DRUGS (2)
  1. ESTRING [Suspect]
     Indication: VULVOVAGINAL DRYNESS
     Dosage: 2 MG, UNK
     Route: 067
     Dates: start: 20110921, end: 20111001
  2. XANAX [Concomitant]
     Indication: ANXIETY
     Dosage: UNK

REACTIONS (4)
  - VULVOVAGINAL SWELLING [None]
  - VULVOVAGINAL BURNING SENSATION [None]
  - VULVOVAGINAL PRURITUS [None]
  - VULVOVAGINAL DISCOMFORT [None]
